FAERS Safety Report 11850112 (Version 1)
Quarter: 2015Q4

REPORT INFORMATION
  Report Type: Spontaneous
  Country: US (occurrence: US)
  Receive Date: 20151218
  Receipt Date: 20151218
  Transmission Date: 20160305
  Serious: No
  Sender: FDA-Public Use
  Company Number: US-JNJFOC-20151110016

PATIENT
  Age: 22 Year
  Sex: Female
  Weight: 77.11 kg

DRUGS (1)
  1. ORTHO TRI CYCLEN [Suspect]
     Active Substance: ETHINYL ESTRADIOL\NORGESTIMATE
     Indication: CONTRACEPTION
     Route: 048

REACTIONS (2)
  - Nasopharyngitis [Not Recovered/Not Resolved]
  - Incorrect product storage [Recovered/Resolved]

NARRATIVE: CASE EVENT DATE: 20151103
